FAERS Safety Report 7296871-4 (Version None)
Quarter: 2011Q1

REPORT INFORMATION
  Report Type: 
  Country: None (occurrence: None)
  Receive Date: 20110216
  Receipt Date: 20110208
  Transmission Date: 20110831
  Serious: Yes (Other)
  Sender: FDA-Public Use
  Company Number: NL-JNJFOC-20110203295

PATIENT
  Sex: Male
  Weight: 3.02 kg

DRUGS (4)
  1. REMICADE [Suspect]
     Route: 064
  2. REMICADE [Suspect]
     Indication: DRUG EXPOSURE DURING PREGNANCY
     Route: 064
  3. REMICADE [Suspect]
     Route: 064
  4. REMICADE [Suspect]
     Route: 064

REACTIONS (2)
  - SHOULDER DYSTOCIA [None]
  - CLAVICLE FRACTURE [None]
